FAERS Safety Report 17325244 (Version 1)
Quarter: 2020Q1

REPORT INFORMATION
  Report Type: Spontaneous
  Country: None (occurrence: US)
  Receive Date: 20200127
  Receipt Date: 20200127
  Transmission Date: 20200409
  Serious: No
  Sender: FDA-Public Use
  Company Number: US-NOSTRUM LABORATORIES, INC.-2079426

PATIENT
  Age: 76 Year
  Sex: Male

DRUGS (1)
  1. ACETAZOLAMIDE EXTENDED-RELEASE [Suspect]
     Active Substance: ACETAZOLAMIDE
     Indication: MENIERE^S DISEASE
     Route: 048

REACTIONS (1)
  - Alopecia [Not Recovered/Not Resolved]
